FAERS Safety Report 8115960-5 (Version None)
Quarter: 2012Q1

REPORT INFORMATION
  Report Type: 
  Country: None (occurrence: None)
  Receive Date: 20120118
  Receipt Date: 20120105
  Transmission Date: 20120608
  Serious: Yes (Hospitalization, Other)
  Sender: FDA-Public Use
  Company Number: 2011PROUSA00902

PATIENT
  Age: 67 Year
  Sex: Male
  Weight: 80.7 kg

DRUGS (13)
  1. SYNTHROID [Concomitant]
  2. ZANTAC [Concomitant]
  3. AMLODIPINE [Concomitant]
  4. RANITIDINE HYDROCHLORIDE [Concomitant]
  5. PROVENGE [Suspect]
     Indication: PROSTATE CANCER
     Dosage: 250 ML, SINGLE, INTRAVENOUS
     Route: 042
     Dates: start: 20111215, end: 20111215
  6. CHOLECALCIFEROL (COLECALCIFEROL) [Concomitant]
  7. DIGOXIN [Concomitant]
  8. ZOLOFT [Concomitant]
  9. NEURONTIN [Concomitant]
  10. PERCOCET [Concomitant]
  11. METFORMIN HCL [Concomitant]
  12. SIMVASTATIN [Concomitant]
  13. FISH OIL (FISH OIL) [Concomitant]

REACTIONS (16)
  - CHOKING SENSATION [None]
  - TRANSIENT ISCHAEMIC ATTACK [None]
  - ATRIAL FIBRILLATION [None]
  - RESPIRATORY DISTRESS [None]
  - CONFUSIONAL STATE [None]
  - ANAEMIA [None]
  - DECREASED APPETITE [None]
  - PERIPHERAL VASCULAR DISORDER [None]
  - VASOCONSTRICTION [None]
  - INTERNATIONAL NORMALISED RATIO INCREASED [None]
  - UPPER RESPIRATORY TRACT INFECTION [None]
  - ASTHENIA [None]
  - PNEUMONIA [None]
  - INSOMNIA [None]
  - TOXICITY TO VARIOUS AGENTS [None]
  - MALNUTRITION [None]
